FAERS Safety Report 25235282 (Version 1)
Quarter: 2025Q2

REPORT INFORMATION
  Report Type: Spontaneous
  Country: CN (occurrence: CN)
  Receive Date: 20250424
  Receipt Date: 20250424
  Transmission Date: 20250717
  Serious: Yes (Hospitalization, Disabling, Other)
  Sender: JIANGSU HANSOH PHARMACEUTICAL
  Company Number: CN-Jiangsu Hansoh Pharmaceutical Co., Ltd-2175522

PATIENT
  Age: 74 Year
  Sex: Male
  Weight: 58 kg

DRUGS (3)
  1. PEMETREXED [Suspect]
     Active Substance: PEMETREXED
     Indication: Lung neoplasm malignant
     Dates: start: 20250214, end: 20250214
  2. TISLELIZUMAB [Suspect]
     Active Substance: TISLELIZUMAB
     Dates: start: 20250214, end: 20250214
  3. CARBOPLATIN [Suspect]
     Active Substance: CARBOPLATIN
     Dates: start: 20250214, end: 20250214

REACTIONS (1)
  - Immune-mediated hepatic disorder [Recovering/Resolving]

NARRATIVE: CASE EVENT DATE: 20250309
